FAERS Safety Report 8067589-5 (Version None)
Quarter: 2012Q1

REPORT INFORMATION
  Report Type: 
  Country: None (occurrence: None)
  Receive Date: 20120124
  Receipt Date: 20120116
  Transmission Date: 20120608
  Serious: Yes (Other)
  Sender: FDA-Public Use
  Company Number: DE-ASTRAZENECA-2012SE03447

PATIENT
  Age: 11 Year
  Sex: Female

DRUGS (1)
  1. BUDESONIDE [Suspect]
     Indication: PROTEIN-LOSING GASTROENTEROPATHY
     Route: 048

REACTIONS (1)
  - CUSHING'S SYNDROME [None]
